FAERS Safety Report 9146307 (Version 1)
Quarter: 2013Q1

REPORT INFORMATION
  Report Type: Spontaneous
  Country: US (occurrence: US)
  Receive Date: 20130307
  Receipt Date: 20130307
  Transmission Date: 20140127
  Serious: Yes (Other)
  Sender: FDA-Public Use
  Company Number: US-ASTELLAS-2013US001226

PATIENT
  Sex: Female

DRUGS (4)
  1. VESICARE [Suspect]
     Indication: MUSCLE SPASMS
     Dosage: 5 MG, UID/QD
     Route: 048
     Dates: start: 20121115
  2. VESICARE [Interacting]
     Dosage: 10 MG, UID/QD
  3. WARFARIN [Interacting]
     Indication: PULMONARY EMBOLISM
     Dosage: UNK
     Route: 065
     Dates: start: 201210
  4. VITAMIN D                          /00107901/ [Concomitant]
     Indication: PRODUCT USED FOR UNKNOWN INDICATION
     Dosage: UNK
     Route: 065

REACTIONS (3)
  - Off label use [Unknown]
  - Anticoagulation drug level below therapeutic [Unknown]
  - Drug interaction [Unknown]
